FAERS Safety Report 8559749-1 (Version None)
Quarter: 2012Q3

REPORT INFORMATION
  Report Type: 
  Country: None (occurrence: None)
  Receive Date: 20120802
  Receipt Date: 20120731
  Transmission Date: 20120928
  Serious: Yes (Other)
  Sender: FDA-Public Use
  Company Number: US-PFIZER INC-2012186196

PATIENT
  Sex: Female
  Weight: 45.351 kg

DRUGS (2)
  1. NASONEX [Concomitant]
     Indication: SEASONAL ALLERGY
     Dosage: UNK (ONE SPRAY), DAILY
  2. ZOLOFT [Suspect]
     Indication: ANXIETY
     Dosage: 50 MG, DAILY
     Dates: start: 20120713, end: 20120727

REACTIONS (1)
  - HYPERSENSITIVITY [None]
